FAERS Safety Report 14534988 (Version 1)
Quarter: 2018Q1

REPORT INFORMATION
  Report Type: Spontaneous
  Country: FR (occurrence: FR)
  Receive Date: 20180215
  Receipt Date: 20180215
  Transmission Date: 20180509
  Serious: Yes (Hospitalization)
  Sender: FDA-Public Use
  Company Number: FR-JNJFOC-20180213191

PATIENT
  Age: 92 Year
  Sex: Female

DRUGS (1)
  1. HALDOL DECANOAS [Suspect]
     Active Substance: HALOPERIDOL DECANOATE
     Indication: PRODUCT USED FOR UNKNOWN INDICATION
     Route: 030
     Dates: start: 201801, end: 2018

REACTIONS (4)
  - Decreased appetite [Recovered/Resolved]
  - Somnolence [Recovered/Resolved]
  - Thirst decreased [Recovered/Resolved]
  - Wrong dosage form [Recovered/Resolved]

NARRATIVE: CASE EVENT DATE: 201801
